FAERS Safety Report 17309004 (Version 2)
Quarter: 2020Q1

REPORT INFORMATION
  Report Type: Spontaneous
  Country: CZ (occurrence: CZ)
  Receive Date: 20200123
  Receipt Date: 20200219
  Transmission Date: 20200409
  Serious: Yes (Other)
  Sender: FDA-Public Use
  Company Number: NVSC2020CZ014315

PATIENT
  Sex: Female

DRUGS (15)
  1. RYDAPT [Suspect]
     Active Substance: MIDOSTAURIN
     Indication: ACUTE MYELOID LEUKAEMIA
     Dosage: 50 MG, BID
     Route: 048
     Dates: start: 20190904
  2. RAMIPRIL ACTAVIS [Concomitant]
     Active Substance: RAMIPRIL
     Indication: PRODUCT USED FOR UNKNOWN INDICATION
     Dosage: 2.5 MG, QD (1-0-0)
     Route: 065
  3. RYDAPT [Suspect]
     Active Substance: MIDOSTAURIN
     Dosage: UNK (1ST CONSOLIDATION)
     Route: 065
     Dates: start: 20191022, end: 20191104
  4. TAZIP [Concomitant]
     Indication: PRODUCT USED FOR UNKNOWN INDICATION
     Dosage: 4.5 MG, Q6H
     Route: 042
  5. RYDAPT [Suspect]
     Active Substance: MIDOSTAURIN
     Dosage: 50 MG, BID
     Route: 048
     Dates: start: 20191015
  6. PURINOL [ALLOPURINOL] [Concomitant]
     Active Substance: ALLOPURINOL
     Indication: PRODUCT USED FOR UNKNOWN INDICATION
     Dosage: 100 MG, QD (1-0-0)
     Route: 065
  7. NOXAFIL [Concomitant]
     Active Substance: POSACONAZOLE
     Indication: PRODUCT USED FOR UNKNOWN INDICATION
     Dosage: 300 MG, Q24H
     Route: 048
  8. HERPESIN [Concomitant]
     Active Substance: ACYCLOVIR
     Indication: PRODUCT USED FOR UNKNOWN INDICATION
     Dosage: 400 MG, Q24H
     Route: 048
  9. RYDAPT [Suspect]
     Active Substance: MIDOSTAURIN
     Dosage: UNK (INDUCTION)
     Route: 065
     Dates: start: 20190911, end: 20190925
  10. RYDAPT [Suspect]
     Active Substance: MIDOSTAURIN
     Dosage: UNK (2ND CONSOLIDATION)
     Route: 065
     Dates: start: 20191210, end: 20191223
  11. ALEXAN (CYTARABINE) [Suspect]
     Active Substance: CYTARABINE
     Indication: ACUTE MYELOID LEUKAEMIA
     Dosage: 173 MG, QD (CONTINUOUS 24 HOUR INFUSION, DAY 1 TO DAY 7 OF CYCLE)
     Route: 042
     Dates: start: 20190904, end: 20190911
  12. CONTROLOC [Concomitant]
     Active Substance: PANTOPRAZOLE SODIUM
     Indication: PRODUCT USED FOR UNKNOWN INDICATION
     Dosage: 40 MG, Q24H
     Route: 042
  13. NORETHISTERON [Concomitant]
     Active Substance: NORETHINDRONE
     Indication: PRODUCT USED FOR UNKNOWN INDICATION
     Dosage: 5 MG, Q12H
     Route: 065
  14. AMIKIN [Concomitant]
     Active Substance: AMIKACIN SULFATE
     Indication: PRODUCT USED FOR UNKNOWN INDICATION
     Dosage: 1 G, Q24H
     Route: 042
  15. MILURIT [Concomitant]
     Active Substance: ALLOPURINOL
     Indication: PRODUCT USED FOR UNKNOWN INDICATION
     Dosage: 300 MG, Q24H
     Route: 048

REACTIONS (4)
  - Tumour lysis syndrome [Recovered/Resolved]
  - Sialoadenitis [Recovered/Resolved]
  - Febrile neutropenia [Recovered/Resolved]
  - Hyperuricaemia [Recovered/Resolved]

NARRATIVE: CASE EVENT DATE: 20190904
